FAERS Safety Report 7766365 (Version 3)
Quarter: 2013Q2

REPORT INFORMATION
  Report Type: Report from Study
  Country: ES (occurrence: ES)
  Receive Date: 20110119
  Receipt Date: 20130503
  Transmission Date: 20140414
  Serious: Yes (Hospitalization)
  Sender: FDA-Public Use
  Company Number: ES-BRISTOL-MYERS SQUIBB COMPANY-15491400

PATIENT
  Age: 66 Year
  Sex: Male
  Weight: 77 kg

DRUGS (9)
  1. CISPLATIN [Suspect]
     Indication: NON-SMALL CELL LUNG CANCER
     Dosage: LAST DOSE:16DEC10.4 TH INFUSION
     Route: 042
     Dates: start: 20101014
  2. GEMZAR [Suspect]
     Indication: NON-SMALL CELL LUNG CANCER
     Dosage: LAST DOSE:23DEC10.8 TH INFUSION
     Route: 042
     Dates: start: 20101014
  3. NECITUMUMAB [Suspect]
     Indication: NON-SMALL CELL LUNG CANCER
     Route: 042
     Dates: start: 20101014
  4. AVANDIA [Concomitant]
  5. ADIRO [Concomitant]
  6. JANUVIA [Concomitant]
  7. ATORVASTATIN [Concomitant]
  8. COLCHICINE [Concomitant]
  9. COAPROVEL [Concomitant]

REACTIONS (1)
  - Haemoptysis [Recovered/Resolved]
